FAERS Safety Report 6309019-7 (Version None)
Quarter: 2009Q3

REPORT INFORMATION
  Report Type: 
  Country: None (occurrence: None)
  Receive Date: 20090814
  Receipt Date: 20070724
  Transmission Date: 20100115
  Serious: Yes (Other)
  Sender: FDA-Public Use
  Company Number: US-ASTRAZENECA-2007UW05915

PATIENT
  Age: 579 Month
  Sex: Female
  Weight: 121.1 kg

DRUGS (18)
  1. SEROQUEL [Suspect]
     Indication: DEPRESSION
     Route: 048
     Dates: start: 20010402
  2. SEROQUEL [Suspect]
     Dosage: 100MG-400MG
     Route: 048
     Dates: start: 20010402
  3. RISPERDAL [Concomitant]
     Dosage: 0.5 - 1 MG
     Dates: start: 20031223, end: 20040311
  4. ZYPREXA [Concomitant]
     Dosage: 5 - 15 MG
     Dates: start: 20001101, end: 20010430
  5. LORAZEPAM [Concomitant]
     Indication: ANXIETY
     Route: 048
     Dates: start: 20020118
  6. KLONOPIN [Concomitant]
     Indication: INSOMNIA
     Route: 048
     Dates: start: 20020118
  7. AMBIEN [Concomitant]
     Indication: INSOMNIA
     Route: 048
     Dates: start: 20010402
  8. BUSPAR [Concomitant]
     Route: 048
     Dates: start: 20010402
  9. TRAZODONE HCL [Concomitant]
     Dosage: 10MG-150MG
     Route: 048
     Dates: start: 20021110
  10. ZOLOFT [Concomitant]
     Dosage: 100MG-300MG
     Route: 048
     Dates: start: 20010402
  11. RITALIN [Concomitant]
     Route: 048
     Dates: start: 20010402
  12. TOPAMAX [Concomitant]
     Dosage: 25MG-200MG
     Route: 048
     Dates: start: 20021114
  13. LIPITOR [Concomitant]
     Dosage: 20MG-80MG
     Route: 048
     Dates: start: 20021224
  14. ALLEGRA [Concomitant]
     Route: 048
     Dates: start: 20021110
  15. LEVOXYL/ SYNTHROID [Concomitant]
     Dosage: 25MG -225MG
     Route: 048
     Dates: start: 20021224
  16. DITROPAN [Concomitant]
     Route: 048
     Dates: start: 20021031
  17. PRILOSEC [Concomitant]
     Route: 048
     Dates: start: 20050902
  18. LORATADINE [Concomitant]
     Route: 048
     Dates: start: 20030602

REACTIONS (2)
  - NEUROPATHY PERIPHERAL [None]
  - TYPE 2 DIABETES MELLITUS [None]
